FAERS Safety Report 16050286 (Version 1)
Quarter: 2019Q1

REPORT INFORMATION
  Report Type: Spontaneous
  Country: SE (occurrence: SE)
  Receive Date: 20190308
  Receipt Date: 20190308
  Transmission Date: 20190418
  Serious: Yes (Hospitalization)
  Sender: FDA-Public Use
  Company Number: SE-TEVA-2019-SE-1020245

PATIENT
  Age: 34 Year
  Sex: Male

DRUGS (3)
  1. ALVEDON [Suspect]
     Active Substance: ACETAMINOPHEN
     Dosage: 5 ST
     Route: 048
     Dates: start: 201811
  2. HALDOL [Suspect]
     Active Substance: HALOPERIDOL
     Dosage: 3 ST
     Route: 048
     Dates: start: 201811
  3. DIMOR [Suspect]
     Active Substance: LOPERAMIDE
     Dosage: 6-8 ASKAR DIMOR
     Route: 048
     Dates: start: 201811, end: 201811

REACTIONS (4)
  - Pain [Unknown]
  - Intentional self-injury [Unknown]
  - Intentional overdose [Unknown]
  - Somnolence [Unknown]

NARRATIVE: CASE EVENT DATE: 20181107
